FAERS Safety Report 9570284 (Version 2)
Quarter: 2013Q4

REPORT INFORMATION
  Report Type: Spontaneous
  Country: US (occurrence: US)
  Receive Date: 20130930
  Receipt Date: 20131106
  Transmission Date: 20140711
  Serious: No
  Sender: FDA-Public Use
  Company Number: US-AMGEN-USASP2013064610

PATIENT
  Age: 62 Year
  Sex: Female
  Weight: 74.83 kg

DRUGS (14)
  1. ENBREL [Suspect]
     Indication: RHEUMATOID ARTHRITIS
     Dosage: 50 MG, QWK
     Route: 058
     Dates: start: 20130815
  2. METHOTREXATE [Concomitant]
     Dosage: 2.5 MG, UNK
  3. FOLIC ACID [Concomitant]
     Dosage: UNK
  4. SYNTHROID [Concomitant]
     Dosage: 137 MUG, UNK
  5. RANEXA [Concomitant]
     Dosage: 500 MG, UNK
  6. IMDUR [Concomitant]
     Dosage: 30 MG, ER
  7. ZOLOFT [Concomitant]
     Dosage: 25 MG, UNK
  8. LIPITOR [Concomitant]
     Dosage: 20 MG, UNK
  9. ZETIA [Concomitant]
     Dosage: 10 MG, UNK
  10. ATIVAN [Concomitant]
     Dosage: 1 MG, UNK
  11. LIBRAX                             /00033301/ [Concomitant]
     Dosage: 5-25 MG,
  12. VITAMIN D                          /00107901/ [Concomitant]
     Dosage: 400 UNIT, UNK
  13. ACIDOPHILUS PROBIOTIC [Concomitant]
     Dosage: UNK
  14. POLYETHYLENE GLYCOL 3350 [Concomitant]
     Dosage: POW

REACTIONS (5)
  - Dizziness [Not Recovered/Not Resolved]
  - Visual impairment [Unknown]
  - Injection site mass [Unknown]
  - Lymphadenopathy [Not Recovered/Not Resolved]
  - Injection site erythema [Unknown]
